FAERS Safety Report 6295310-X (Version None)
Quarter: 2009Q3

REPORT INFORMATION
  Report Type: 
  Country: None (occurrence: None)
  Receive Date: 20090803
  Receipt Date: 20090721
  Transmission Date: 20100115
  Serious: Yes (Hospitalization)
  Sender: FDA-Public Use
  Company Number: NL-AVENTIS-200917408GDDC

PATIENT
  Age: 70 Year
  Sex: Female

DRUGS (3)
  1. DOCETAXEL [Suspect]
     Route: 042
     Dates: start: 20081022, end: 20081022
  2. DOXORUBICIN HCL [Suspect]
     Dates: start: 20080730, end: 20081001
  3. CYCLOFOSFAMIDE [Suspect]
     Dates: start: 20080730, end: 20081001

REACTIONS (2)
  - HYPOKALAEMIA [None]
  - NEUTROPENIA [None]
